FAERS Safety Report 21025010 (Version 3)
Quarter: 2022Q4

REPORT INFORMATION
  Report Type: Spontaneous
  Country: JP (occurrence: JP)
  Receive Date: 20220629
  Receipt Date: 20221115
  Transmission Date: 20230112
  Serious: Yes (Hospitalization, Other)
  Sender: FDA-Public Use
  Company Number: JP-NOVARTISPH-NVSJ2022JP091925

PATIENT
  Age: 12 Year
  Sex: Male
  Weight: 66.8 kg

DRUGS (8)
  1. ILARIS [Suspect]
     Active Substance: CANAKINUMAB
     Indication: Still^s disease
     Dosage: 285 MG
     Route: 058
     Dates: start: 20220412, end: 20220412
  2. ILARIS [Suspect]
     Active Substance: CANAKINUMAB
     Dosage: 285 MG
     Route: 058
     Dates: start: 20220510, end: 20220510
  3. PREDNISOLONE [Concomitant]
     Active Substance: PREDNISOLONE
     Indication: Still^s disease
     Dosage: 3.5 MG, BID
     Route: 065
     Dates: start: 20211122
  4. PREDNISOLONE [Concomitant]
     Active Substance: PREDNISOLONE
     Dosage: RE-DOSE INCREASED
     Route: 048
  5. PREDNISOLONE [Concomitant]
     Active Substance: PREDNISOLONE
     Dosage: TAPERING
     Route: 048
  6. REBAMIPIDE [Concomitant]
     Active Substance: REBAMIPIDE
     Indication: Gastritis prophylaxis
     Dosage: 100 MG, BID
     Route: 048
     Dates: start: 20220329
  7. ELDECALCITOL [Concomitant]
     Active Substance: ELDECALCITOL
     Indication: Osteoporosis prophylaxis
     Dosage: 0.75 MG, QD
     Route: 048
     Dates: start: 20211216
  8. ALLELOCK [Concomitant]
     Active Substance: OLOPATADINE HYDROCHLORIDE
     Indication: Conjunctivitis allergic
     Dosage: 5 MG, BID
     Route: 048
     Dates: start: 20220315, end: 20220510

REACTIONS (6)
  - Drug-induced liver injury [Recovered/Resolved]
  - Blood lactate dehydrogenase increased [Recovered/Resolved]
  - Gamma-glutamyltransferase abnormal [Recovered/Resolved]
  - Aspartate aminotransferase increased [Recovered/Resolved]
  - Alanine aminotransferase increased [Recovered/Resolved]
  - Eosinophilia [Not Recovered/Not Resolved]

NARRATIVE: CASE EVENT DATE: 20220510
